FAERS Safety Report 9542748 (Version 1)
Quarter: 2013Q3

REPORT INFORMATION
  Report Type: Spontaneous
  Country: US (occurrence: US)
  Receive Date: 20130923
  Receipt Date: 20130923
  Transmission Date: 20140515
  Serious: No
  Sender: FDA-Public Use
  Company Number: US-PFIZER INC-2013272649

PATIENT
  Age: 44 Year
  Sex: Female
  Weight: 73 kg

DRUGS (2)
  1. CHANTIX [Suspect]
     Indication: SMOKING CESSATION THERAPY
     Dosage: 0.5 MG, 1X/DAY
     Route: 048
     Dates: start: 20130918
  2. AMBIEN [Concomitant]
     Indication: SLEEP DISORDER
     Dosage: UNK

REACTIONS (2)
  - Headache [Recovering/Resolving]
  - Dysgeusia [Unknown]
